FAERS Safety Report 16769414 (Version 2)
Quarter: 2020Q1

REPORT INFORMATION
  Report Type: Report from Study
  Country: AU (occurrence: AU)
  Receive Date: 20190903
  Receipt Date: 20200109
  Transmission Date: 20200409
  Serious: Yes (Other)
  Sender: FDA-Public Use
  Company Number: AU-REGENERON PHARMACEUTICALS, INC.-2019-51383

PATIENT

DRUGS (1)
  1. EYLEA [Suspect]
     Active Substance: AFLIBERCEPT
     Indication: NEOVASCULAR AGE-RELATED MACULAR DEGENERATION
     Dosage: EVERY 4 WEEKS/ RIGHT EYE
     Dates: start: 201212

REACTIONS (9)
  - Visual impairment [Unknown]
  - Visual field defect [Unknown]
  - Blindness transient [Recovered/Resolved]
  - Eye haemorrhage [Unknown]
  - Injection site pain [Unknown]
  - Metamorphopsia [Unknown]
  - Eye injury [Unknown]
  - Diplopia [Unknown]
  - Eye pain [Recovered/Resolved]

NARRATIVE: CASE EVENT DATE: 201304
